FAERS Safety Report 8771858 (Version 1)
Quarter: 2012Q4

REPORT INFORMATION
  Report Type: Report from Study
  Country: DE (occurrence: DE)
  Receive Date: 20120905
  Receipt Date: 20120905
  Transmission Date: 20130627
  Serious: Yes (Death)
  Sender: FDA-Public Use
  Company Number: DE-ROCHE-1114778

PATIENT
  Sex: Male
  Weight: 74 kg

DRUGS (7)
  1. AVASTIN [Suspect]
     Indication: ADENOCARCINOMA
     Route: 065
  2. AVASTIN [Suspect]
     Indication: METASTASES TO CENTRAL NERVOUS SYSTEM
  3. PACLITAXEL [Suspect]
     Indication: PRODUCT USED FOR UNKNOWN INDICATION
     Route: 042
     Dates: end: 20120329
  4. CARBOPLATIN [Suspect]
     Indication: PRODUCT USED FOR UNKNOWN INDICATION
     Route: 042
     Dates: end: 20120329
  5. ASS [Suspect]
     Indication: PRODUCT USED FOR UNKNOWN INDICATION
     Route: 048
     Dates: start: 20120305, end: 20120329
  6. RAMIPRIL [Concomitant]
     Route: 048
     Dates: start: 20120305, end: 20120329
  7. FORTECORTIN [Concomitant]
     Route: 048
     Dates: start: 20120305, end: 20120329

REACTIONS (1)
  - Death [Fatal]
